FAERS Safety Report 13976390 (Version 1)
Quarter: 2017Q3

REPORT INFORMATION
  Report Type: Report from Study
  Country: ZA (occurrence: ZA)
  Receive Date: 20170915
  Receipt Date: 20170915
  Transmission Date: 20171128
  Serious: Yes (Death, Hospitalization, Other)
  Sender: FDA-Public Use
  Company Number: ZA-AMGEN-ZAFSL2017138661

PATIENT
  Age: 59 Year
  Sex: Female

DRUGS (1)
  1. ARANESP [Suspect]
     Active Substance: DARBEPOETIN ALFA
     Indication: CHRONIC KIDNEY DISEASE
     Dosage: 80 MUG, QMO
     Route: 058
     Dates: start: 201707, end: 201708

REACTIONS (3)
  - Death [Fatal]
  - Dyspnoea [Unknown]
  - Surgery [Unknown]

NARRATIVE: CASE EVENT DATE: 201708
